FAERS Safety Report 11848352 (Version 1)
Quarter: 2015Q4

REPORT INFORMATION
  Report Type: Spontaneous
  Country: IT (occurrence: IT)
  Receive Date: 20151217
  Receipt Date: 20151217
  Transmission Date: 20160305
  Serious: Yes (Other)
  Sender: FDA-Public Use
  Company Number: IT-ABBVIE-15P-083-1522923-00

PATIENT
  Age: 20 Year
  Sex: Female

DRUGS (3)
  1. AUGMENTIN [Suspect]
     Active Substance: AMOXICILLIN\CLAVULANATE POTASSIUM
     Indication: DRUG ABUSE
     Dosage: FORM STRENGTH: 875 MG/125 MG
     Route: 048
     Dates: start: 20151126, end: 20151126
  2. VECLAM [Suspect]
     Active Substance: CLARITHROMYCIN
     Indication: DRUG ABUSE
     Route: 048
     Dates: start: 20151126, end: 20151126
  3. DELTACORTENE [Suspect]
     Active Substance: PREDNISONE
     Indication: DRUG ABUSE
     Route: 048
     Dates: start: 20151126, end: 20151126

REACTIONS (3)
  - Intentional self-injury [Recovering/Resolving]
  - Drug abuse [Recovering/Resolving]
  - Vomiting [Recovering/Resolving]

NARRATIVE: CASE EVENT DATE: 20151126
